FAERS Safety Report 13614088 (Version 1)
Quarter: 2017Q2

REPORT INFORMATION
  Report Type: Spontaneous
  Country: US (occurrence: US)
  Receive Date: 20170606
  Receipt Date: 20170606
  Transmission Date: 20170830
  Serious: No
  Sender: FDA-Public Use
  Company Number: US-TEVA-747296ACC

PATIENT
  Age: 52 Year
  Sex: Male

DRUGS (4)
  1. CHLORZOXAZONE. [Suspect]
     Active Substance: CHLORZOXAZONE
     Indication: NEURALGIA
  2. LYRICA [Suspect]
     Active Substance: PREGABALIN
     Indication: NEURALGIA
  3. TYLENOL [Suspect]
     Active Substance: ACETAMINOPHEN
     Indication: NEURALGIA
  4. HYDROCODONE [Suspect]
     Active Substance: HYDROCODONE
     Indication: NEURALGIA

REACTIONS (2)
  - Drug ineffective [Unknown]
  - Alcohol use [Unknown]
